FAERS Safety Report 24258388 (Version 2)
Quarter: 2024Q3

REPORT INFORMATION
  Report Type: Report from Study
  Country: IT (occurrence: IT)
  Receive Date: 20240828
  Receipt Date: 20240903
  Transmission Date: 20241016
  Serious: Yes (Disabling)
  Sender: JOHNSON AND JOHNSON
  Company Number: IT-JNJFOC-20240713963

PATIENT
  Age: 78 Year
  Sex: Male
  Weight: 70 kg

DRUGS (7)
  1. ERDAFITINIB [Suspect]
     Active Substance: ERDAFITINIB
     Indication: Metastatic carcinoma of the bladder
     Dosage: 8 MG/DAY DOSE REDUCED TO 6 MG/DAY. MEDICAL KIT NUMBER: 130830
     Route: 048
     Dates: start: 20240414, end: 20240612
  2. ELIQUIS [Concomitant]
     Active Substance: APIXABAN
     Indication: Arrhythmia
     Route: 065
  3. AMLODIPINE BESYLATE [Concomitant]
     Active Substance: AMLODIPINE BESYLATE
     Indication: Hypertension
     Route: 065
  4. RAMIPRIL [Concomitant]
     Active Substance: RAMIPRIL
     Indication: Hypertension
     Route: 065
  5. ESOMEPRAZOLE MAGNESIUM [Concomitant]
     Active Substance: ESOMEPRAZOLE MAGNESIUM
     Route: 065
  6. TAMSULOSIN HYDROCHLORIDE [Concomitant]
     Active Substance: TAMSULOSIN HYDROCHLORIDE
     Route: 065
  7. TAFLUPROST [Concomitant]
     Active Substance: TAFLUPROST
     Route: 047

REACTIONS (8)
  - Visual impairment [Recovered/Resolved with Sequelae]
  - Dysgeusia [Recovered/Resolved]
  - Nail disorder [Recovered/Resolved with Sequelae]
  - Diarrhoea [Recovered/Resolved]
  - Stomatitis [Recovered/Resolved]
  - Ocular toxicity [Not Recovered/Not Resolved]
  - Skin toxicity [Not Recovered/Not Resolved]
  - Gastrointestinal toxicity [Recovered/Resolved]

NARRATIVE: CASE EVENT DATE: 20240515
